FAERS Safety Report 14603498 (Version 1)
Quarter: 2018Q1

REPORT INFORMATION
  Report Type: Spontaneous
  Country: FR (occurrence: FR)
  Receive Date: 20180306
  Receipt Date: 20180306
  Transmission Date: 20180509
  Serious: Yes (Hospitalization)
  Sender: FDA-Public Use
  Company Number: FR-CONCORDIA PHARMACEUTICALS INC.-E2B_00010384

PATIENT
  Age: 22 Year
  Sex: Female
  Weight: 63 kg

DRUGS (9)
  1. PRIMPERAN [Suspect]
     Active Substance: METOCLOPRAMIDE HYDROCHLORIDE
     Indication: NAUSEA
     Dosage: ; IN TOTAL
     Route: 042
     Dates: start: 20171014, end: 20171014
  2. SPASFON [Concomitant]
     Active Substance: PHLOROGLUCINOL\1,3,5-TRIMETHOXYBENZENE
     Dates: start: 20171015
  3. INEXIUM [Concomitant]
     Active Substance: ESOMEPRAZOLE
  4. MORPHINE (CHLORHYDRATE DE) [Suspect]
     Active Substance: MORPHINE HYDROCHLORIDE
     Indication: PAIN
     Route: 042
     Dates: start: 20171014, end: 20171014
  5. CONTRAMAL [Concomitant]
     Active Substance: TRAMADOL HYDROCHLORIDE
     Dates: start: 20171015
  6. PERFALGAN [Concomitant]
     Active Substance: ACETAMINOPHEN
     Dates: start: 20171015
  7. ALFUZOSIN 10 MG [Suspect]
     Active Substance: ALFUZOSIN
     Indication: URINARY TRACT DISORDER
     Dosage: ; IN TOTAL
     Route: 048
     Dates: start: 20171014, end: 20171014
  8. PROFENID [Suspect]
     Active Substance: KETOPROFEN
     Indication: PAIN
     Dosage: ; IN TOTAL
     Route: 042
     Dates: start: 20171015, end: 20171015
  9. GLIVEC [Concomitant]
     Active Substance: IMATINIB MESYLATE

REACTIONS (1)
  - Neutropenia [Recovering/Resolving]

NARRATIVE: CASE EVENT DATE: 20171016
